FAERS Safety Report 22178286 (Version 1)
Quarter: 2023Q2

REPORT INFORMATION
  Report Type: Spontaneous
  Country: CN (occurrence: CN)
  Receive Date: 20230405
  Receipt Date: 20230405
  Transmission Date: 20230721
  Serious: Yes (Other)
  Sender: FDA-Public Use
  Company Number: CN-BAYER-2023A040912

PATIENT
  Age: 66 Year
  Sex: Female

DRUGS (3)
  1. NEXAVAR [Suspect]
     Active Substance: SORAFENIB
     Indication: Hepatocellular carcinoma
     Dosage: UNK
     Route: 048
     Dates: start: 202012
  2. NEXAVAR [Suspect]
     Active Substance: SORAFENIB
     Indication: Hepatocellular carcinoma
     Dosage: 0.4 G, QD, DOSE REDUCED
     Route: 048
     Dates: start: 2021, end: 202111
  3. STIVARGA [Suspect]
     Active Substance: REGORAFENIB
     Indication: Hepatocellular carcinoma
     Dosage: UNK
     Route: 048
     Dates: start: 202111

REACTIONS (4)
  - Hepatocellular carcinoma [None]
  - Blood pressure increased [Recovering/Resolving]
  - Diarrhoea [Recovering/Resolving]
  - Asthenia [None]

NARRATIVE: CASE EVENT DATE: 20210101
